FAERS Safety Report 10272483 (Version 1)
Quarter: 2014Q2

REPORT INFORMATION
  Report Type: Spontaneous
  Country: US (occurrence: None)
  Receive Date: 20140630
  Receipt Date: 20140630
  Transmission Date: 20141212
  Serious: No
  Sender: FDA-Public Use
  Company Number: None

PATIENT
  Age: 26 Year
  Sex: Female

DRUGS (1)
  1. DEPO MEDROL DEPO MEDROL 40MG [Suspect]
     Indication: LUNG DISORDER
     Dosage: 24TH AND 27TH

REACTIONS (8)
  - Chest pain [None]
  - Neck pain [None]
  - Back pain [None]
  - Blood pressure increased [None]
  - Nausea [None]
  - Abdominal pain [None]
  - Headache [None]
  - Dyspepsia [None]
